FAERS Safety Report 4880756-4 (Version None)
Quarter: 2006Q1

REPORT INFORMATION
  Report Type: 
  Country: None (occurrence: None)
  Receive Date: 20060111
  Receipt Date: 20051103
  Transmission Date: 20060701
  Serious: No
  Sender: FDA-Public Use
  Company Number: 2005S1000241

PATIENT
  Age: 73 Year
  Weight: 57 kg

DRUGS (8)
  1. CUBICIN [Suspect]
     Indication: STAPHYLOCOCCAL BACTERAEMIA
     Dosage: 350 MG;Q24H;IV
     Route: 042
     Dates: start: 20051025, end: 20051102
  2. PIPERACILLIN SODIUM/TAZOBACTAM SODIUM [Concomitant]
  3. ONDANSETRON [Concomitant]
  4. HYDROCHLORIDE [Concomitant]
  5. PANTOPRAZOLE [Concomitant]
  6. MARINOL [Concomitant]
  7. CHEMOTHERAPY [Concomitant]
  8. VANCOMYCIN [Concomitant]

REACTIONS (1)
  - LEUKOPENIA [None]
